FAERS Safety Report 19705621 (Version 1)
Quarter: 2021Q3

REPORT INFORMATION
  Report Type: Report from Study
  Country: None (occurrence: US)
  Receive Date: 20210817
  Receipt Date: 20210817
  Transmission Date: 20211014
  Serious: Yes (Other)
  Sender: FDA-Public Use
  Company Number: US-ABBVIE-21K-163-4035721-00

PATIENT

DRUGS (1)
  1. CREON [Suspect]
     Active Substance: PANCRELIPASE AMYLASE\PANCRELIPASE LIPASE\PANCRELIPASE PROTEASE
     Indication: PANCREATIC FAILURE
     Route: 048

REACTIONS (7)
  - Spinal operation [Unknown]
  - Myalgia [Unknown]
  - Osteonecrosis [Unknown]
  - Loss of personal independence in daily activities [Unknown]
  - Sinus operation [Unknown]
  - Muscle spasms [Unknown]
  - Degenerative bone disease [Unknown]

NARRATIVE: CASE EVENT DATE: 2021
